FAERS Safety Report 11890987 (Version 2)
Quarter: 2016Q1

REPORT INFORMATION
  Report Type: Spontaneous
  Country: US (occurrence: US)
  Receive Date: 20160106
  Receipt Date: 20160311
  Transmission Date: 20160526
  Serious: Yes (Hospitalization, Other)
  Sender: FDA-Public Use
  Company Number: US-BEH-2015057338

PATIENT
  Age: 75 Year
  Sex: Female
  Weight: 81 kg

DRUGS (32)
  1. FLUTICASONE [Concomitant]
     Active Substance: FLUTICASONE\FLUTICASONE PROPIONATE
  2. POTASSIUM CHLORIDE. [Concomitant]
     Active Substance: POTASSIUM CHLORIDE
  3. WELLBUTRIN [Concomitant]
     Active Substance: BUPROPION HYDROCHLORIDE
  4. LASIX [Concomitant]
     Active Substance: FUROSEMIDE
  5. FLORAJEN 3 [Concomitant]
  6. XANAX [Concomitant]
     Active Substance: ALPRAZOLAM
  7. NORCO [Concomitant]
     Active Substance: ACETAMINOPHEN\HYDROCODONE BITARTRATE
  8. LUTEIN [Concomitant]
     Active Substance: LUTEIN
  9. HIZENTRA [Suspect]
     Active Substance: HUMAN IMMUNOGLOBULIN G
     Indication: IMMUNODEFICIENCY COMMON VARIABLE
     Dosage: 4 GM 20 ML VIAL
     Route: 058
  10. ALLEGRA [Concomitant]
     Active Substance: FEXOFENADINE HYDROCHLORIDE
  11. ABILIFY [Concomitant]
     Active Substance: ARIPIPRAZOLE
  12. XOLAIR [Concomitant]
     Active Substance: OMALIZUMAB
  13. VITAMIN D [Concomitant]
     Active Substance: CHOLECALCIFEROL
  14. HIZENTRA [Suspect]
     Active Substance: HUMAN IMMUNOGLOBULIN G
     Dosage: 10 GM 50 ML VIALS
     Route: 058
  15. DIPHENHYDRAMINE. [Concomitant]
     Active Substance: DIPHENHYDRAMINE
  16. AZITHROMYCIN ANHYDROUS. [Concomitant]
     Active Substance: AZITHROMYCIN ANHYDROUS
  17. SYMBICORT [Concomitant]
     Active Substance: BUDESONIDE\FORMOTEROL FUMARATE DIHYDRATE
  18. LORAZEPAM. [Concomitant]
     Active Substance: LORAZEPAM
  19. CALCIUM [Concomitant]
     Active Substance: CALCIUM
  20. SINGULAIR [Concomitant]
     Active Substance: MONTELUKAST SODIUM
  21. LMX [Concomitant]
     Active Substance: LIDOCAINE
  22. CYMBALTA [Concomitant]
     Active Substance: DULOXETINE HYDROCHLORIDE
  23. CLARITIN [Concomitant]
     Active Substance: LORATADINE
  24. DIFLUCAN [Concomitant]
     Active Substance: FLUCONAZOLE
  25. OMEGA-3 ACIDS [Concomitant]
     Active Substance: OMEGA-3 FATTY ACIDS
  26. DAILY MULTIVITAMIN [Concomitant]
     Active Substance: VITAMINS
  27. GUAIFENESIN. [Concomitant]
     Active Substance: GUAIFENESIN
  28. EPIPEN [Concomitant]
     Active Substance: EPINEPHRINE
  29. LOPERAMIDE [Concomitant]
     Active Substance: LOPERAMIDE
  30. NEXIUM [Concomitant]
     Active Substance: ESOMEPRAZOLE MAGNESIUM
  31. CYANOCOBALAMIN. [Concomitant]
     Active Substance: CYANOCOBALAMIN
  32. METHIONINE [Concomitant]
     Active Substance: METHIONINE

REACTIONS (3)
  - Pneumonia [Unknown]
  - Bronchitis [Unknown]
  - Lung infection [Unknown]

NARRATIVE: CASE EVENT DATE: 20150812
